FAERS Safety Report 9124538 (Version 1)
Quarter: 2013Q1

REPORT INFORMATION
  Report Type: Spontaneous
  Country: NL (occurrence: NL)
  Receive Date: 20130116
  Receipt Date: 20130116
  Transmission Date: 20140127
  Serious: Yes (Other)
  Sender: FDA-Public Use
  Company Number: PHHY2013NL003230

PATIENT
  Sex: Female

DRUGS (1)
  1. TOBI [Suspect]
     Dosage: UNK
     Dates: end: 201205

REACTIONS (2)
  - Brain neoplasm [Unknown]
  - Terminal state [Unknown]
